FAERS Safety Report 9612448 (Version 2)
Quarter: 2013Q4

REPORT INFORMATION
  Report Type: Spontaneous
  Country: DE (occurrence: DE)
  Receive Date: 20131010
  Receipt Date: 20131018
  Transmission Date: 20140711
  Serious: Yes (Hospitalization, Other)
  Sender: FDA-Public Use
  Company Number: DE-UCBSA-099232

PATIENT
  Age: 53 Year
  Sex: Female
  Weight: 63 kg

DRUGS (6)
  1. VIMPAT [Suspect]
     Indication: EPILEPSY
     Dates: start: 2009
  2. KEPPRA [Suspect]
     Indication: EPILEPSY
     Dosage: 125 MG-0-125 MG
     Dates: start: 2004
  3. KEPPRA [Suspect]
     Indication: EPILEPSY
     Dates: start: 2005, end: 2006
  4. LEVETIRACETAM UCB [Suspect]
     Indication: EPILEPSY
  5. LEVETIRACETAM UCB [Suspect]
     Indication: EPILEPSY
     Dates: start: 2008
  6. CORTISON [Concomitant]
     Indication: RAYNAUD^S PHENOMENON
     Route: 048
     Dates: start: 2010, end: 2012

REACTIONS (18)
  - Raynaud^s phenomenon [Not Recovered/Not Resolved]
  - Rheumatoid arthritis [Not Recovered/Not Resolved]
  - Fibromyalgia [Not Recovered/Not Resolved]
  - Vasculitis [Not Recovered/Not Resolved]
  - Fatigue [Unknown]
  - Urinary incontinence [Unknown]
  - Arthralgia [Not Recovered/Not Resolved]
  - Tremor [Not Recovered/Not Resolved]
  - Inflammation [Not Recovered/Not Resolved]
  - Sleep disorder [Unknown]
  - Nausea [Unknown]
  - Oesophageal disorder [Unknown]
  - Syncope [Unknown]
  - Asthenia [Unknown]
  - Bronchitis [Unknown]
  - Feeling cold [Not Recovered/Not Resolved]
  - Inappropriate schedule of drug administration [Unknown]
  - Underdose [Unknown]
